FAERS Safety Report 10459209 (Version 1)
Quarter: 2014Q3

REPORT INFORMATION
  Report Type: Spontaneous
  Country: US (occurrence: None)
  Receive Date: 20140916
  Receipt Date: 20140916
  Transmission Date: 20150326
  Serious: No
  Sender: FDA-Public Use
  Company Number: None

PATIENT
  Age: 67 Year
  Sex: Female

DRUGS (1)
  1. NEXAVAR [Suspect]
     Active Substance: SORAFENIB
     Indication: THYROID CANCER
     Dosage: 200MG, ONCE DAILY, PO
     Route: 048
     Dates: start: 20130205

REACTIONS (3)
  - Blood pressure inadequately controlled [None]
  - Condition aggravated [None]
  - Diabetic neuropathy [None]

NARRATIVE: CASE EVENT DATE: 20140715
